FAERS Safety Report 5015637-9 (Version None)
Quarter: 2006Q2

REPORT INFORMATION
  Report Type: 
  Country: None (occurrence: None)
  Receive Date: 20060601
  Receipt Date: 20060516
  Transmission Date: 20061013
  Serious: Yes (Hospitalization)
  Sender: FDA-Public Use
  Company Number: US-ROCHE-448196

PATIENT
  Sex: Female
  Weight: 1.5 kg

DRUGS (2)
  1. COPEGUS [Suspect]
     Dates: start: 20030915, end: 20031115
  2. PEGASYS [Suspect]
     Dates: start: 20030915, end: 20031115

REACTIONS (4)
  - GASTROOESOPHAGEAL REFLUX DISEASE [None]
  - NEONATAL DISORDER [None]
  - PREMATURE BABY [None]
  - PREMATURE LABOUR [None]
